FAERS Safety Report 4799760-X (Version None)
Quarter: 2005Q4

REPORT INFORMATION
  Report Type: 
  Country: None (occurrence: None)
  Receive Date: 20051012
  Receipt Date: 20051012
  Transmission Date: 20060501
  Serious: Yes (Hospitalization)
  Sender: FDA-Public Use
  Company Number: None

PATIENT
  Sex: Female
  Weight: 90.7194 kg

DRUGS (4)
  1. HYDROCHLOROTHIAZIDE [Suspect]
     Indication: DIURETIC THERAPY
     Dosage: PO  (THERAPY DATES: PRIOR TO ADMISSION)
     Route: 048
  2. VITAMINS [Concomitant]
  3. ENBREL [Concomitant]
  4. DAYPRIL [Concomitant]

REACTIONS (3)
  - CHEST DISCOMFORT [None]
  - HYPOKALAEMIA [None]
  - PAINFUL RESPIRATION [None]
